FAERS Safety Report 12516806 (Version 1)
Quarter: 2016Q2

REPORT INFORMATION
  Report Type: Spontaneous
  Country: IT (occurrence: IT)
  Receive Date: 20160630
  Receipt Date: 20160630
  Transmission Date: 20160815
  Serious: Yes (Other)
  Sender: FDA-Public Use
  Company Number: IT-ASPEN PHARMA TRADING LIMITED US-IT-023077

PATIENT
  Age: 22 Year
  Sex: Male

DRUGS (2)
  1. CHLORAMBUCIL [Suspect]
     Active Substance: CHLORAMBUCIL
     Indication: BEHCET^S SYNDROME
     Route: 065
     Dates: start: 200011, end: 200107
  2. CICLOSPORIN [Concomitant]
     Active Substance: CYCLOSPORINE
     Indication: PRODUCT USED FOR UNKNOWN INDICATION
     Route: 065
     Dates: start: 200107, end: 200201

REACTIONS (2)
  - Off label use [Unknown]
  - Leukopenia [Unknown]
